FAERS Safety Report 7512742-X (Version None)
Quarter: 2011Q2

REPORT INFORMATION
  Report Type: 
  Country: None (occurrence: None)
  Receive Date: 20110531
  Receipt Date: 20110517
  Transmission Date: 20111010
  Serious: Yes (Other)
  Sender: FDA-Public Use
  Company Number: A0788119A

PATIENT
  Age: 49 Year
  Sex: Female

DRUGS (2)
  1. AVANDAMET [Suspect]
     Route: 048
     Dates: start: 20050214, end: 20050421
  2. AVANDIA [Suspect]
     Dosage: 4MG TWICE PER DAY
     Route: 048
     Dates: start: 20050421, end: 20090226

REACTIONS (2)
  - CARDIAC FAILURE CONGESTIVE [None]
  - LUNG DISORDER [None]
